FAERS Safety Report 9752308 (Version 1)
Quarter: 2013Q4

REPORT INFORMATION
  Report Type: Spontaneous
  Country: US (occurrence: None)
  Receive Date: 20131212
  Receipt Date: 20131212
  Transmission Date: 20140711
  Serious: Yes (Life-Threatening, Congenital Anomaly)
  Sender: FDA-Public Use
  Company Number: None

PATIENT
  Age: 19 Year
  Sex: Female
  Weight: 67.59 kg

DRUGS (1)
  1. RISPERIDONE 1MG [Suspect]
     Indication: BIPOLAR DISORDER
     Dosage: ONCE DAILY TAKEN BY MOUTH
     Route: 048
     Dates: start: 20091018, end: 20100323

REACTIONS (1)
  - Maternal exposure during pregnancy [None]
